FAERS Safety Report 19149919 (Version 2)
Quarter: 2021Q3

REPORT INFORMATION
  Report Type: Report from Study
  Country: US (occurrence: US)
  Receive Date: 20210417
  Receipt Date: 20210717
  Transmission Date: 20211014
  Serious: Yes (Other)
  Sender: FDA-Public Use
  Company Number: US-TAKEDA-US202030927

PATIENT
  Sex: Male

DRUGS (1)
  1. HUMAN NORMAL IMMUNOGLOBULIN; LIQUID [Suspect]
     Active Substance: HUMAN IMMUNOGLOBULIN G
     Indication: IMMUNODEFICIENCY COMMON VARIABLE
     Dosage: UNK
     Route: 042

REACTIONS (7)
  - Fatigue [Unknown]
  - Wheezing [Unknown]
  - Deafness [Unknown]
  - Asthenia [Unknown]
  - Hypersensitivity [Unknown]
  - Headache [Unknown]
  - Inappropriate schedule of product administration [Unknown]
